FAERS Safety Report 4777876-1 (Version None)
Quarter: 2005Q3

REPORT INFORMATION
  Report Type: 
  Country: None (occurrence: None)
  Receive Date: 20050926
  Receipt Date: 20050120
  Transmission Date: 20060218
  Serious: Yes (Hospitalization)
  Sender: FDA-Public Use
  Company Number: US-2005-BP-00998BP

PATIENT
  Age: 65 Year
  Sex: Female

DRUGS (15)
  1. SPIRIVA [Suspect]
     Indication: CHRONIC OBSTRUCTIVE PULMONARY DISEASE
     Route: 055
     Dates: start: 20040601, end: 20050101
  2. SPIRIVA [Suspect]
     Indication: ASTHMA
  3. SPIRIVA [Suspect]
     Indication: EMPHYSEMA
  4. ADVAIR DISKUS 100/50 [Concomitant]
  5. ZYRTEC [Concomitant]
  6. SINGULAIR [Concomitant]
  7. MUCINEX [Concomitant]
  8. FOSAMAX [Concomitant]
  9. KEPPRA [Concomitant]
  10. COMBIVENT [Concomitant]
  11. DUONEB [Concomitant]
  12. NASONEX [Concomitant]
  13. ATROVENT [Concomitant]
  14. PROTONIX [Concomitant]
  15. ASPIRIN [Concomitant]

REACTIONS (6)
  - LUNG INFILTRATION [None]
  - OESOPHAGEAL DISORDER [None]
  - PHARMACEUTICAL PRODUCT COMPLAINT [None]
  - PNEUMONIA [None]
  - PNEUMONIA ASPIRATION [None]
  - RESPIRATORY TRACT INFECTION [None]
